FAERS Safety Report 14321259 (Version 10)
Quarter: 2019Q2

REPORT INFORMATION
  Report Type: Report from Study
  Country: DE (occurrence: DE)
  Receive Date: 20171223
  Receipt Date: 20190605
  Transmission Date: 20190711
  Serious: Yes (Hospitalization, Other)
  Sender: FDA-Public Use
  Company Number: DE-MYLANLABS-2017M1080731

PATIENT
  Age: 73 Year
  Sex: Female
  Weight: 63 kg

DRUGS (18)
  1. PARACETAMOL [Suspect]
     Active Substance: ACETAMINOPHEN
     Indication: B-CELL LYMPHOMA
     Dosage: 1 GRAM (DAY 1)
     Route: 048
     Dates: start: 20151026
  2. TAVEGIL                            /00137201/ [Suspect]
     Active Substance: CLEMASTINE FUMARATE
     Indication: PRODUCT USED FOR UNKNOWN INDICATION
     Dosage: 2 MG, UNK
     Route: 042
     Dates: start: 20150928
  3. RITUXIMAB. [Suspect]
     Active Substance: RITUXIMAB
     Indication: B-CELL LYMPHOMA
     Dosage: 1400 MG, UNK
     Route: 058
     Dates: start: 20150928
  4. RITUXIMAB. [Suspect]
     Active Substance: RITUXIMAB
     Dosage: 634 MILLIGRAM
     Route: 042
     Dates: start: 20150928, end: 20150928
  5. DEXAMETHASONE. [Concomitant]
     Active Substance: DEXAMETHASONE
     Indication: PREMEDICATION
     Dosage: 4 MILLIGRAM
     Route: 048
     Dates: start: 20150929, end: 20160216
  6. ONDANSETRON [Suspect]
     Active Substance: ONDANSETRON
     Indication: B-CELL LYMPHOMA
     Dosage: UNK
  7. ONDANSETRON [Suspect]
     Active Substance: ONDANSETRON
     Indication: PREMEDICATION
     Dosage: 4 MG, UNK
     Route: 042
     Dates: start: 20150929
  8. MABTHERA [Suspect]
     Active Substance: RITUXIMAB
     Indication: B-CELL LYMPHOMA
     Dosage: UNK
     Route: 042
     Dates: start: 20150928, end: 20150928
  9. MABTHERA [Suspect]
     Active Substance: RITUXIMAB
     Dosage: 1400 MILLIGRAM, QD
     Route: 058
     Dates: start: 20151026
  10. PARACETAMOL [Suspect]
     Active Substance: ACETAMINOPHEN
     Indication: PREMEDICATION
     Dosage: 1 G, UNK
     Route: 048
     Dates: start: 20150928
  11. RITUXIMAB. [Suspect]
     Active Substance: RITUXIMAB
     Dosage: 1400 MG, UNK
     Route: 058
     Dates: start: 20151026
  12. RITUXIMAB. [Suspect]
     Active Substance: RITUXIMAB
     Indication: B-CELL LYMPHOMA
     Dosage: UNK
     Route: 042
  13. CIPROFLOXACIN. [Concomitant]
     Active Substance: CIPROFLOXACIN
     Indication: PRODUCT USED FOR UNKNOWN INDICATION
     Dosage: 500 MG, UNK
     Route: 065
     Dates: start: 20151121
  14. DEXAMETHASON                       /00016001/ [Concomitant]
     Active Substance: DEXAMETHASONE
     Indication: PREMEDICATION
     Dosage: 4 MG, UNK
     Route: 048
     Dates: start: 20150929, end: 20160216
  15. PREDNISOLON                        /00016201/ [Concomitant]
     Active Substance: PREDNISOLONE
     Indication: PREMEDICATION
     Dosage: 75 MG, UNK
     Route: 042
     Dates: start: 20150928
  16. METOPROLOL. [Concomitant]
     Active Substance: METOPROLOL
     Indication: HYPERTENSION
     Dosage: 47.5 MG, QD (DAILY DOSE: 47.5 MG MILLGRAM(S) EVERY DAYS)
     Route: 048
     Dates: start: 20091007
  17. TAVEGIL                            /00137201/ [Suspect]
     Active Substance: CLEMASTINE FUMARATE
     Dosage: DAY 1
     Dates: start: 20151026
  18. BENDAMUSTINE [Suspect]
     Active Substance: BENDAMUSTINE
     Indication: B-CELL LYMPHOMA
     Dosage: 135 MG, UNK (MOST RECENT DOSE ON 16/FEB/2016)
     Route: 042
     Dates: start: 20150929

REACTIONS (5)
  - Orthostatic intolerance [Recovered/Resolved]
  - Respiratory tract infection [Recovered/Resolved]
  - Pneumonia [Recovered/Resolved]
  - Cough [Recovered/Resolved]
  - Leukopenia [Recovered/Resolved]

NARRATIVE: CASE EVENT DATE: 20151030
